FAERS Safety Report 13591811 (Version 1)
Quarter: 2017Q2

REPORT INFORMATION
  Report Type: Spontaneous
  Country: US (occurrence: US)
  Receive Date: 20170529
  Receipt Date: 20170529
  Transmission Date: 20170830
  Serious: No
  Sender: FDA-Public Use
  Company Number: US-ASTRAZENECA-2017SE42019

PATIENT
  Sex: Male

DRUGS (2)
  1. CRESTOR [Suspect]
     Active Substance: ROSUVASTATIN CALCIUM
     Dosage: 10.0MG UNKNOWN
     Route: 048
  2. CRESTOR [Suspect]
     Active Substance: ROSUVASTATIN CALCIUM
     Dosage: GENERIC UNKNOWN
     Route: 065

REACTIONS (13)
  - Hypersomnia [Unknown]
  - Adverse drug reaction [Unknown]
  - Extraocular muscle paresis [Unknown]
  - Drug dose omission [Unknown]
  - Muscular weakness [Unknown]
  - Abdominal discomfort [Unknown]
  - Hypotension [Unknown]
  - Sleep disorder [Unknown]
  - Urine analysis abnormal [Unknown]
  - Syncope [Unknown]
  - Epistaxis [Unknown]
  - Pruritus [Unknown]
  - Visual impairment [Unknown]
